FAERS Safety Report 9072529 (Version 1)
Quarter: 2013Q1

REPORT INFORMATION
  Report Type: Report from Study
  Country: US (occurrence: US)
  Receive Date: 20130129
  Receipt Date: 20130129
  Transmission Date: 20140127
  Serious: No
  Sender: FDA-Public Use
  Company Number: US-ABBOTT-12P-163-0919731-00

PATIENT
  Age: 28 Year
  Sex: Female

DRUGS (6)
  1. HUMIRA 40 MG/0.8 ML PEN [Suspect]
     Indication: CROHN^S DISEASE
     Dosage: SECOND DOSE
     Dates: start: 20120313
  2. ASACOL [Concomitant]
     Indication: PRODUCT USED FOR UNKNOWN INDICATION
     Dosage: 400 MG X 4 TABLETS THREE TIMES DAILY
  3. OMEPRAZOLE [Concomitant]
     Indication: GASTROOESOPHAGEAL REFLUX DISEASE
  4. LEVETIRACETAM [Concomitant]
     Indication: CONVULSION
  5. ENTOCORT [Concomitant]
     Indication: PRODUCT USED FOR UNKNOWN INDICATION
     Dosage: TAPERING OFF, 1 TAB DAILY FOR A FEW DAYS, THEN DISCONTINUE
     Dates: end: 20120320
  6. ACASAN [Concomitant]
     Indication: PRODUCT USED FOR UNKNOWN INDICATION
     Dosage: 75 MG DAILY TO GO ALONG WITH HUMIRA
     Dates: start: 20120320

REACTIONS (4)
  - Nausea [Recovering/Resolving]
  - Menstrual disorder [Unknown]
  - Menstrual disorder [Unknown]
  - Menstrual disorder [Unknown]
